FAERS Safety Report 15470577 (Version 8)
Quarter: 2019Q2

REPORT INFORMATION
  Report Type: Spontaneous
  Country: JP (occurrence: JP)
  Receive Date: 20181005
  Receipt Date: 20190620
  Transmission Date: 20190711
  Serious: Yes (Death)
  Sender: FDA-Public Use
  Company Number: PHJP2018JP017295

PATIENT
  Age: 66 Year
  Sex: Male
  Weight: 61.4 kg

DRUGS (12)
  1. ROMIPLATE [Concomitant]
     Active Substance: ROMIPLOSTIM
     Indication: IMMUNE THROMBOCYTOPENIC PURPURA
     Dosage: 250 UG, QD
     Route: 058
     Dates: start: 20161005, end: 20161021
  2. PREDNISOLONE. [Suspect]
     Active Substance: PREDNISOLONE
     Dosage: 55 MG, UNK
     Route: 048
     Dates: start: 20160913, end: 20161011
  3. HALIZON [Concomitant]
     Active Substance: AMPHOTERICIN B
     Indication: ORAL CANDIDIASIS
     Dosage: 10 ML, QID
     Route: 048
     Dates: start: 20160822, end: 20161021
  4. ZOLPIDEM [Concomitant]
     Active Substance: ZOLPIDEM\ZOLPIDEM TARTRATE
     Indication: INSOMNIA
     Dosage: 5 MG, QD
     Route: 048
     Dates: start: 20160915, end: 20161021
  5. NEORAL [Suspect]
     Active Substance: CYCLOSPORINE
     Indication: CASTLEMAN^S DISEASE
     Dosage: 50 MG, BID
     Route: 048
     Dates: start: 20160819
  6. PREDNISOLONE. [Suspect]
     Active Substance: PREDNISOLONE
     Indication: CASTLEMAN^S DISEASE
     Dosage: 60 MG, UNK
     Route: 048
     Dates: start: 20160812, end: 20160912
  7. AMITIZA [Concomitant]
     Active Substance: LUBIPROSTONE
     Indication: CONSTIPATION
     Dosage: 24 UG, BID
     Route: 048
     Dates: start: 20161006, end: 20161021
  8. TAKECAB [Concomitant]
     Active Substance: VONOPRAZAN FUMURATE
     Indication: GASTRIC ULCER
     Dosage: 20 MG, QD
     Route: 048
     Dates: start: 20160927, end: 20161021
  9. EDIROL [Concomitant]
     Active Substance: ELDECALCITOL
     Indication: OSTEOPOROSIS
     Dosage: 0.75 UG, QD
     Route: 048
     Dates: start: 20160823, end: 20161021
  10. PREDNISOLONE. [Suspect]
     Active Substance: PREDNISOLONE
     Dosage: 50 MG, UNK
     Route: 048
     Dates: start: 20161012
  11. ALBUMINAR [Concomitant]
     Active Substance: ALBUMIN HUMAN
     Indication: NEPHROTIC SYNDROME
     Dosage: 50 ML, QD
     Route: 041
     Dates: start: 20160915, end: 20161021
  12. FUROSEMIDE. [Concomitant]
     Active Substance: FUROSEMIDE
     Indication: NEPHROTIC SYNDROME
     Dosage: 40 MG, TID
     Route: 042
     Dates: start: 20160819, end: 20161021

REACTIONS (6)
  - Defect conduction intraventricular [Fatal]
  - Aspergillus infection [Fatal]
  - Cardiac arrest [Fatal]
  - Product use in unapproved indication [Unknown]
  - Sepsis [Fatal]
  - Castleman^s disease [Fatal]

NARRATIVE: CASE EVENT DATE: 20160916
